FAERS Safety Report 11005737 (Version 5)
Quarter: 2015Q4

REPORT INFORMATION
  Report Type: Report from Study
  Country: DE (occurrence: GB)
  Receive Date: 20150409
  Receipt Date: 20151221
  Transmission Date: 20160304
  Serious: Yes (Life-Threatening, Hospitalization)
  Sender: FDA-Public Use
  Company Number: GB-TEVA-545849USA

PATIENT
  Age: 75 Year
  Sex: Male

DRUGS (16)
  1. OFATUMUMAB [Suspect]
     Active Substance: OFATUMUMAB
     Indication: CHRONIC LYMPHOCYTIC LEUKAEMIA
     Dosage: 300.0 MG, UNKNOWN FREQ.
     Route: 042
     Dates: start: 20150212, end: 20150220
  2. ACICLOVIR [Concomitant]
     Active Substance: ACYCLOVIR
     Indication: CHRONIC LYMPHOCYTIC LEUKAEMIA
     Route: 048
     Dates: start: 20150212
  3. SODIUM CHLORIDE. [Concomitant]
     Active Substance: SODIUM CHLORIDE
     Indication: RENAL IMPAIRMENT
     Route: 042
     Dates: start: 20150221, end: 20150221
  4. METOCLOPRAMIDE. [Concomitant]
     Active Substance: METOCLOPRAMIDE
     Indication: CHRONIC LYMPHOCYTIC LEUKAEMIA
     Route: 048
     Dates: start: 20150212, end: 20150215
  5. G-CSF [Concomitant]
     Active Substance: GRANULOCYTE COLONY-STIMULATING FACTOR NOS
     Indication: PRODUCT USED FOR UNKNOWN INDICATION
     Dosage: UNK UNK, UNKNOWN FREQ.
     Route: 065
  6. FINASTERIDE. [Concomitant]
     Active Substance: FINASTERIDE
     Indication: BENIGN PROSTATIC HYPERPLASIA
     Dosage: 5.0 MG, ONCE DAILY
     Route: 048
     Dates: start: 20060315
  7. ALLOPURINOL. [Concomitant]
     Active Substance: ALLOPURINOL
     Indication: CHRONIC LYMPHOCYTIC LEUKAEMIA
     Route: 048
     Dates: start: 20150212, end: 20150218
  8. COTRIMOXAZOLE [Concomitant]
     Active Substance: SULFAMETHOXAZOLE\TRIMETHOPRIM
     Indication: PRODUCT USED FOR UNKNOWN INDICATION
     Dosage: UNK UNK, UNKNOWN FREQ.
     Route: 065
  9. HYDROCORTISONE. [Concomitant]
     Active Substance: HYDROCORTISONE
     Indication: CHRONIC LYMPHOCYTIC LEUKAEMIA
     Route: 042
     Dates: start: 20150212, end: 20150212
  10. ATORVASTATIN [Concomitant]
     Active Substance: ATORVASTATIN
     Indication: HYPERLIPIDAEMIA
     Dosage: 10.0 MG, ONCE DAILY
     Route: 048
     Dates: start: 20130815, end: 20150221
  11. BENDAMUSTINE HYDROCHLORIDE [Suspect]
     Active Substance: BENDAMUSTINE HYDROCHLORIDE
     Indication: CHRONIC LYMPHOCYTIC LEUKAEMIA
     Dosage: 154.0 MG, UNKNOWN FREQ.
     Route: 042
     Dates: start: 20150212, end: 20150213
  12. PARACETAMOL [Concomitant]
     Active Substance: ACETAMINOPHEN
     Indication: CHRONIC LYMPHOCYTIC LEUKAEMIA
     Route: 048
     Dates: start: 20150212, end: 20150223
  13. CHLORPHENIRAMINE                   /00072501/ [Concomitant]
     Active Substance: CHLORPHENIRAMINE
     Indication: CHRONIC LYMPHOCYTIC LEUKAEMIA
     Route: 042
     Dates: start: 20150212, end: 20150212
  14. SODIUM CHLORIDE. [Concomitant]
     Active Substance: SODIUM CHLORIDE
     Route: 042
     Dates: start: 20150221, end: 20150221
  15. TAMSULOSIN [Concomitant]
     Active Substance: TAMSULOSIN
     Indication: ERECTILE DYSFUNCTION
     Dosage: 400.0 MG, ONCE DAILY
     Route: 048
     Dates: start: 20030315
  16. LANSOPRAZOLE. [Concomitant]
     Active Substance: LANSOPRAZOLE
     Indication: GASTRIC DISORDER
     Dosage: 15.0 MG, ONCE DAILY
     Route: 048
     Dates: start: 20150220, end: 20150223

REACTIONS (2)
  - Febrile neutropenia [Recovered/Resolved with Sequelae]
  - Atrial fibrillation [Recovered/Resolved with Sequelae]

NARRATIVE: CASE EVENT DATE: 20150221
